FAERS Safety Report 14332733 (Version 1)
Quarter: 2017Q4

REPORT INFORMATION
  Report Type: Spontaneous
  Country: US (occurrence: US)
  Receive Date: 20171228
  Receipt Date: 20171228
  Transmission Date: 20180321
  Serious: Yes (Death, Hospitalization, Other)
  Sender: FDA-Public Use
  Company Number: US-APOTEX-2017AP022926

PATIENT
  Age: 37 Year
  Sex: Female

DRUGS (8)
  1. HEROIN [Suspect]
     Active Substance: DIAMORPHINE
     Dosage: UNK, INGESTION AND PARENTERAL
     Route: 051
  2. MORPHINE [Suspect]
     Active Substance: MORPHINE
     Indication: PRODUCT USED FOR UNKNOWN INDICATION
     Dosage: UNK, INGESTION AND PARENTERAL
     Route: 048
  3. FENTANYL. [Suspect]
     Active Substance: FENTANYL
     Indication: PRODUCT USED FOR UNKNOWN INDICATION
     Dosage: UNK, INGESTION AND PARENTERAL
     Route: 048
  4. HYDROCODONE [Suspect]
     Active Substance: HYDROCODONE
     Indication: PRODUCT USED FOR UNKNOWN INDICATION
     Dosage: UNK, INGESTION AND PARENTERAL
     Route: 048
  5. MORPHINE [Suspect]
     Active Substance: MORPHINE
     Dosage: UNK, INGESTION AND PARENTERAL
     Route: 051
  6. FENTANYL. [Suspect]
     Active Substance: FENTANYL
     Dosage: UNK, INGESTION AND PARENTERAL
     Route: 051
  7. HEROIN [Suspect]
     Active Substance: DIAMORPHINE
     Indication: PRODUCT USED FOR UNKNOWN INDICATION
     Dosage: UNK, INGESTION AND PARENTERAL
     Route: 048
  8. HYDROCODONE [Suspect]
     Active Substance: HYDROCODONE
     Dosage: UNK, INGESTION AND PARENTERAL
     Route: 051

REACTIONS (2)
  - Drug abuse [Fatal]
  - Cardio-respiratory arrest [Fatal]
